FAERS Safety Report 6088832-8 (Version None)
Quarter: 2009Q1

REPORT INFORMATION
  Report Type: 
  Country: None (occurrence: None)
  Receive Date: 20090220
  Receipt Date: 20090220
  Transmission Date: 20090719
  Serious: Yes (Life-Threatening)
  Sender: FDA-Public Use
  Company Number: None

PATIENT
  Age: 77 Year
  Sex: Male
  Weight: 74.8435 kg

DRUGS (2)
  1. LISINOPRIL [Suspect]
     Indication: BLOOD PRESSURE MANAGEMENT
     Dosage: ONE DAILY PO
     Route: 048
     Dates: start: 20090207, end: 20090209
  2. LISINOPRIL [Suspect]
     Indication: BLOOD PRESSURE MANAGEMENT
     Dosage: ONE DAILY PO
     Route: 048
     Dates: start: 20090210, end: 20090213

REACTIONS (7)
  - ASTHENIA [None]
  - CHEST DISCOMFORT [None]
  - DISTURBANCE IN ATTENTION [None]
  - DIZZINESS [None]
  - HEADACHE [None]
  - HYPOAESTHESIA [None]
  - SOMNOLENCE [None]
